FAERS Safety Report 14536640 (Version 1)
Quarter: 2018Q1

REPORT INFORMATION
  Report Type: Spontaneous
  Country: US (occurrence: US)
  Receive Date: 20180215
  Receipt Date: 20180215
  Transmission Date: 20180509
  Serious: Yes (Hospitalization)
  Sender: FDA-Public Use
  Company Number: None

PATIENT
  Age: 63 Year
  Sex: Male
  Weight: 95 kg

DRUGS (13)
  1. FENTANYL. [Suspect]
     Active Substance: FENTANYL
     Indication: SEDATION
     Dosage: DATES OF USE - RECENT
     Route: 042
  2. MAG OX [Concomitant]
     Active Substance: MAGNESIUM OXIDE
  3. WELLBUTRIN [Concomitant]
     Active Substance: BUPROPION HYDROCHLORIDE
  4. FENTANYL. [Suspect]
     Active Substance: FENTANYL
     Indication: CARDIOVERSION
     Dosage: DATES OF USE - RECENT
     Route: 042
  5. MIDAZOLAM [Suspect]
     Active Substance: MIDAZOLAM HYDROCHLORIDE
     Indication: SEDATION
     Dosage: DATES OF USE - RECENT
     Route: 042
  6. FAMOTIDINE. [Concomitant]
     Active Substance: FAMOTIDINE
  7. ADA [Concomitant]
  8. KLOR-CON [Concomitant]
     Active Substance: POTASSIUM CHLORIDE
  9. COLACE [Concomitant]
     Active Substance: DOCUSATE SODIUM
  10. HEPARIN [Concomitant]
     Active Substance: HEPARIN SODIUM
  11. COREG [Concomitant]
     Active Substance: CARVEDILOL
  12. MIDAZOLAM [Suspect]
     Active Substance: MIDAZOLAM HYDROCHLORIDE
     Indication: CARDIOVERSION
     Dosage: DATES OF USE - RECENT
     Route: 042
  13. LIDOCAINE. [Concomitant]
     Active Substance: LIDOCAINE

REACTIONS (5)
  - Respiratory distress [None]
  - Mental status changes [None]
  - Hypotension [None]
  - Depressed level of consciousness [None]
  - Irregular breathing [None]

NARRATIVE: CASE EVENT DATE: 20170727
